FAERS Safety Report 12628795 (Version 1)
Quarter: 2016Q3

REPORT INFORMATION
  Report Type: Spontaneous
  Country: FR (occurrence: FR)
  Receive Date: 20160808
  Receipt Date: 20160808
  Transmission Date: 20161109
  Serious: Yes (Hospitalization)
  Sender: FDA-Public Use
  Company Number: FR-009507513-1608FRA003164

PATIENT
  Age: 77 Year
  Sex: Female
  Weight: 84 kg

DRUGS (12)
  1. INDAPAMIDE. [Suspect]
     Active Substance: INDAPAMIDE
     Dosage: INDAPAMIDE+PERINDOPRIL (TRADE NAME UNKNOWN) 1.25/4 MG. ONCE A DAY
     Route: 048
  2. SITAGLIPTIN PHOSPHATE [Suspect]
     Active Substance: SITAGLIPTIN PHOSPHATE
     Dosage: 50 MG, UNK
     Route: 048
     Dates: end: 20150409
  3. METFORMIN [Suspect]
     Active Substance: METFORMIN HYDROCHLORIDE
     Dosage: 1000 MG, TID (1-1-1)
     Dates: end: 20150409
  4. ZOLPIDEM [Concomitant]
     Active Substance: ZOLPIDEM\ZOLPIDEM TARTRATE
     Dosage: 10 MG, (0-0-1) QD
     Route: 048
  5. EZETIMIBE. [Concomitant]
     Active Substance: EZETIMIBE
     Dosage: 10 MG, QD
     Route: 048
  6. DICLOFENAC DIETHYLAMINE [Concomitant]
     Active Substance: DICLOFENAC DIETHYLAMINE
     Dosage: UNK
     Route: 003
  7. OMEPRAZOLE. [Concomitant]
     Active Substance: OMEPRAZOLE
     Dosage: 20 MG, QD
     Route: 048
  8. PERINDOPRIL [Suspect]
     Active Substance: PERINDOPRIL
     Dosage: 1 DF, QD (INDAPAMIDE+PERINDOPRIL (TRADE NAME UNKNOWN) 1.25/4 MG. ONCE A DAY)
     Route: 048
     Dates: end: 20150408
  9. LANTUS [Concomitant]
     Active Substance: INSULIN GLARGINE
     Dosage: UNK, STRENGTH 100 UNIT/ML
     Route: 058
  10. SIMVASTATIN. [Concomitant]
     Active Substance: SIMVASTATIN
     Dosage: 20 MG, QD
     Route: 048
  11. DICLOFENAC [Suspect]
     Active Substance: DICLOFENAC
     Dosage: 1 DF (75 MG), QD
     Route: 048
     Dates: end: 20150408
  12. PREGABALIN. [Concomitant]
     Active Substance: PREGABALIN
     Dosage: 150 MG, (0-0-1) QD
     Route: 048

REACTIONS (3)
  - Prescribed overdose [Recovered/Resolved]
  - Acute kidney injury [Recovered/Resolved]
  - Lactic acidosis [Recovered/Resolved]

NARRATIVE: CASE EVENT DATE: 20150409
